FAERS Safety Report 14271772 (Version 4)
Quarter: 2018Q1

REPORT INFORMATION
  Report Type: Spontaneous
  Country: RU (occurrence: RU)
  Receive Date: 20171211
  Receipt Date: 20180315
  Transmission Date: 20180508
  Serious: Yes (Death, Other)
  Sender: FDA-Public Use
  Company Number: RU-REGENERON PHARMACEUTICALS, INC.-2017-28760

PATIENT

DRUGS (1)
  1. EYLEA [Suspect]
     Active Substance: AFLIBERCEPT
     Indication: RETINOPATHY OF PREMATURITY
     Dosage: 0.6 MG/0.015 ML, PRN
     Dates: start: 20170830, end: 20170830

REACTIONS (12)
  - Iris vascular disorder [Unknown]
  - Intraventricular haemorrhage [Fatal]
  - Sepsis neonatal [Fatal]
  - Retinal neovascularisation [Unknown]
  - Bronchopulmonary dysplasia [Fatal]
  - Central nervous system haemorrhage [Fatal]
  - Pupil fixed [Unknown]
  - Product use in unapproved indication [Unknown]
  - Off label use [Unknown]
  - Neonatal candida infection [Fatal]
  - Brain injury [Fatal]
  - Drug administered to patient of inappropriate age [Unknown]
